FAERS Safety Report 19940330 (Version 2)
Quarter: 2022Q1

REPORT INFORMATION
  Report Type: Spontaneous
  Country: CA (occurrence: CA)
  Receive Date: 20211011
  Receipt Date: 20220221
  Transmission Date: 20220423
  Serious: Yes (Life-Threatening, Hospitalization, Disabling)
  Sender: FDA-Public Use
  Company Number: CA-ELI_LILLY_AND_COMPANY-CA202110001867

PATIENT
  Age: 10 Year
  Sex: Male

DRUGS (6)
  1. STRATTERA [Suspect]
     Active Substance: ATOMOXETINE HYDROCHLORIDE
     Indication: Attention deficit hyperactivity disorder
     Dosage: 25 MG, DAILY
     Route: 048
     Dates: start: 20190924, end: 20191031
  2. CONCERTA [Suspect]
     Active Substance: METHYLPHENIDATE HYDROCHLORIDE
     Indication: Attention deficit hyperactivity disorder
     Dosage: 72 MG, DAILY
     Route: 048
     Dates: start: 20191009, end: 20191031
  3. LEVOFLOXACIN [Concomitant]
     Active Substance: LEVOFLOXACIN
     Indication: Product used for unknown indication
     Dosage: 320 MG, DAILY
     Route: 048
     Dates: start: 20191104, end: 20191104
  4. CLARITHROMYCIN [Concomitant]
     Active Substance: CLARITHROMYCIN
     Indication: Product used for unknown indication
     Dosage: 240 MG, BID
     Route: 048
     Dates: start: 20191031, end: 20191031
  5. AMOXICILLIN [Concomitant]
     Active Substance: AMOXICILLIN
     Indication: Product used for unknown indication
     Dosage: 945 MG, TID
     Route: 048
     Dates: start: 20191031, end: 20191101
  6. ACETAMINOPHEN [Concomitant]
     Active Substance: ACETAMINOPHEN
     Indication: Product used for unknown indication
     Dosage: 474 MG, OTHER (EVERY FOUR HOURS)
     Route: 048
     Dates: start: 20191031, end: 20191031

REACTIONS (11)
  - Bradyphrenia [Unknown]
  - Confusional state [Unknown]
  - Delirium [Unknown]
  - Disorganised speech [Unknown]
  - Disorientation [Unknown]
  - Pyrexia [Unknown]
  - Agitation [Recovered/Resolved]
  - Anxiety [Unknown]
  - Hallucination [Unknown]
  - Restlessness [Unknown]
  - Pneumonia mycoplasmal [Recovering/Resolving]

NARRATIVE: CASE EVENT DATE: 20191023
